FAERS Safety Report 6785788-7 (Version None)
Quarter: 2010Q2

REPORT INFORMATION
  Report Type: 
  Country: None (occurrence: None)
  Receive Date: 20100622
  Receipt Date: 20100622
  Transmission Date: 20101027
  Serious: Yes (Hospitalization)
  Sender: FDA-Public Use
  Company Number: None

PATIENT
  Age: 72 Year
  Sex: Female
  Weight: 51 kg

DRUGS (11)
  1. SEPTRA [Suspect]
     Indication: URINARY TRACT INFECTION
     Dosage: BID PO RECENT
     Route: 048
  2. OSCAL [Concomitant]
  3. CHOLECALCIFEROL [Concomitant]
  4. DOXYCYCLINE [Concomitant]
  5. M.V.I. [Concomitant]
  6. NYSTATIN [Concomitant]
  7. NYSTATIN TOPICAL POWDER [Concomitant]
  8. ZOFRAN [Concomitant]
  9. K+ PROTOCOL [Concomitant]
  10. EVISTA [Concomitant]
  11. NS [Concomitant]

REACTIONS (8)
  - CONFUSIONAL STATE [None]
  - DYSURIA [None]
  - HYPERHIDROSIS [None]
  - HYPOPHAGIA [None]
  - NAUSEA [None]
  - RASH [None]
  - SEPSIS [None]
  - THROMBOCYTOPENIA [None]
